FAERS Safety Report 7591016-5 (Version None)
Quarter: 2011Q3

REPORT INFORMATION
  Report Type: 
  Country: None (occurrence: None)
  Receive Date: 20110705
  Receipt Date: 20110629
  Transmission Date: 20111222
  Serious: Yes (Death, Hospitalization)
  Sender: FDA-Public Use
  Company Number: US-ALLERGAN-1108867US

PATIENT
  Age: 78 Year
  Sex: Female
  Weight: 89.9 kg

DRUGS (14)
  1. VITAMIN D [Concomitant]
     Indication: VITAMIN D DEFICIENCY
     Dosage: 1 DF, QD
     Route: 048
     Dates: start: 20110223
  2. QUETIAPINE [Concomitant]
     Indication: DEPRESSION
     Dosage: 100 MG, QD
     Route: 048
     Dates: start: 20110119, end: 20110424
  3. TRAZODONE HCL [Concomitant]
     Indication: DEPRESSION
     Dosage: 100 MG, QHS
     Dates: end: 20110415
  4. BOTULINUM TOXIN TYPE A [Suspect]
     Indication: TORTICOLLIS
     Dosage: 110 UNITS, SINGLE
     Route: 030
     Dates: start: 20110525, end: 20110525
  5. RALOXIFENE HCL [Concomitant]
     Indication: OSTEOPOROSIS PROPHYLAXIS
     Dosage: 60 MG, UNK
  6. SERTRALINE HYDROCHLORIDE [Concomitant]
     Indication: DEPRESSION
     Dosage: 50 MG, QD
     Route: 048
     Dates: start: 20110119, end: 20110415
  7. LITHIUM CARBONATE [Concomitant]
     Indication: BIPOLAR DISORDER
     Dosage: 1 DF, BID
     Route: 048
     Dates: start: 20110429
  8. LAMOTRIGINE [Concomitant]
     Indication: BIPOLAR DISORDER
     Dosage: 150 MG, BID
     Route: 048
     Dates: start: 20110429
  9. FERROUS SULFATE TAB [Concomitant]
     Indication: ANAEMIA
     Dosage: 65 MG, BID
     Route: 048
     Dates: start: 20110223
  10. LEVOTHYROXINE SODIUM [Concomitant]
     Indication: THYROID DISORDER
     Dosage: 150 A?G, UNK
     Route: 048
  11. TRIAMCINOLONE [Concomitant]
     Indication: SKIN DISORDER
     Dosage: UNK
     Route: 061
     Dates: start: 20110316
  12. KLONOPIN [Concomitant]
     Indication: CONVULSION
     Dosage: .5 MG, BID
     Route: 048
     Dates: start: 20110316, end: 20110415
  13. CYMBALTA [Concomitant]
     Indication: DEPRESSION
     Dosage: 60 MG, QD
     Route: 048
     Dates: end: 20110415
  14. VITAMIN E NATURAL [Concomitant]
     Indication: PRODUCT USED FOR UNKNOWN INDICATION
     Dosage: 1 DF, QD
     Route: 048
     Dates: start: 20110429

REACTIONS (1)
  - TOXICITY TO VARIOUS AGENTS [None]
